FAERS Safety Report 8899550 (Version 1)
Quarter: 2012Q4

REPORT INFORMATION
  Report Type: 
  Country: SE (occurrence: SE)
  Receive Date: 20121109
  Receipt Date: 20121109
  Transmission Date: 20130627
  Serious: Yes (Hospitalization)
  Sender: FDA-Public Use
  Company Number: SE-PFIZER INC-2012275063

PATIENT
  Age: 52 Year
  Sex: Male
  Weight: 100 kg

DRUGS (6)
  1. GENOTROPIN [Suspect]
     Indication: GROWTH HORMONE DEFICIENCY
     Dosage: 0.4 mg, 1x/day, 7 injections/week.
     Route: 058
     Dates: start: 19981110
  2. TESTOVIRON-DEPOT [Concomitant]
     Indication: LUTEINISING HORMONE DEFICIENCY
     Dosage: UNK
     Dates: start: 19940901
  3. TESTOVIRON-DEPOT [Concomitant]
     Indication: FOLLICLE-STIMULATING HORMONE DEFICIENCY
  4. TESTOVIRON-DEPOT [Concomitant]
     Indication: TESTICULAR HYPOGONADISM
  5. LEVOTHYROXINE [Concomitant]
     Indication: TSH DECREASED
     Dosage: UNK
     Dates: start: 19940901
  6. LEVOTHYROXINE [Concomitant]
     Indication: PRIMARY HYPOTHYROIDISM

REACTIONS (1)
  - Infection [Unknown]
